FAERS Safety Report 8993259 (Version 1)
Quarter: 2013Q1

REPORT INFORMATION
  Report Type: Spontaneous
  Country: IT (occurrence: IT)
  Receive Date: 20130102
  Receipt Date: 20130102
  Transmission Date: 20140127
  Serious: Yes (Death, Other)
  Sender: FDA-Public Use
  Company Number: PHHY2012IT121456

PATIENT
  Age: 23 Year
  Sex: Male

DRUGS (4)
  1. AMISULPRIDE [Suspect]
     Indication: SCHIZOAFFECTIVE DISORDER
  2. ORPHENADRINE [Suspect]
     Indication: SCHIZOAFFECTIVE DISORDER
  3. LITHIUM CARBONATE [Suspect]
     Indication: SCHIZOAFFECTIVE DISORDER
  4. FLUPHENAZINE DECANOATE [Suspect]
     Indication: SCHIZOAFFECTIVE DISORDER

REACTIONS (3)
  - Hepatitis fulminant [Fatal]
  - Hypertransaminasaemia [Unknown]
  - Oropharyngeal pain [Unknown]
